FAERS Safety Report 6698748-1 (Version None)
Quarter: 2010Q2

REPORT INFORMATION
  Report Type: 
  Country: None (occurrence: None)
  Receive Date: 20100427
  Receipt Date: 20100415
  Transmission Date: 20101027
  Serious: Yes (Other)
  Sender: FDA-Public Use
  Company Number: PHHY2010FR23758

PATIENT
  Sex: Male

DRUGS (7)
  1. ZOMETA [Suspect]
     Indication: MULTIPLE MYELOMA
     Dosage: UNK
     Dates: start: 20040101, end: 20081024
  2. BISOPROLOL FUMARATE [Concomitant]
     Dosage: 10 MG
  3. PLAVIX [Concomitant]
     Indication: PROPHYLAXIS
     Dosage: 75 MG, QD
  4. VASTEN [Concomitant]
     Indication: PROPHYLAXIS
     Dosage: 20
  5. ZOPICLONE [Concomitant]
     Indication: INSOMNIA
     Dosage: 7.5 MG, QD
  6. MOLSIDOMINE [Concomitant]
     Indication: PROPHYLAXIS
     Dosage: 2 MG, QD
  7. DIOALGO [Concomitant]
     Indication: PAIN
     Dosage: UNK

REACTIONS (7)
  - BONE DISORDER [None]
  - BONE LESION [None]
  - GINGIVAL INFECTION [None]
  - OSTEONECROSIS [None]
  - PAIN [None]
  - PRIMARY SEQUESTRUM [None]
  - PROSTHESIS USER [None]
